FAERS Safety Report 5574104-4 (Version None)
Quarter: 2007Q4

REPORT INFORMATION
  Report Type: 
  Country: None (occurrence: None)
  Receive Date: 20071221
  Receipt Date: 20071115
  Transmission Date: 20080405
  Serious: Yes (Hospitalization, Other)
  Sender: FDA-Public Use
  Company Number: 64550

PATIENT
  Age: 62 Year
  Sex: Male
  Weight: 85 kg

DRUGS (7)
  1. IBUPROFEN [Suspect]
     Indication: BACK PAIN
     Dosage: ORAL
     Route: 048
     Dates: start: 20070501, end: 20070603
  2. ASPIRIN [Concomitant]
  3. ATORVASTATIN [Concomitant]
  4. FELODIPINE [Concomitant]
  5. HYDROCARBAMIDE [Concomitant]
  6. METFORMIN [Concomitant]
  7. FLOMAX [Concomitant]

REACTIONS (5)
  - HEADACHE [None]
  - LEUKOCYTOSIS [None]
  - MENINGITIS [None]
  - PROTEIN TOTAL INCREASED [None]
  - VOMITING [None]
